FAERS Safety Report 23343738 (Version 3)
Quarter: 2024Q1

REPORT INFORMATION
  Report Type: Spontaneous
  Country: US (occurrence: US)
  Receive Date: 20231227
  Receipt Date: 20240227
  Transmission Date: 20240409
  Serious: No
  Sender: FDA-Public Use
  Company Number: US-PFIZER INC-PV202300205183

PATIENT
  Age: 59 Year
  Sex: Female
  Weight: 64.399 kg

DRUGS (7)
  1. CIBINQO [Interacting]
     Active Substance: ABROCITINIB
     Indication: Eczema
     Dosage: 100MG ONCE A DAY
     Route: 048
     Dates: start: 202310
  2. CIBINQO [Interacting]
     Active Substance: ABROCITINIB
     Indication: Granuloma annulare
  3. FLUOXETINE [Interacting]
     Active Substance: FLUOXETINE HYDROCHLORIDE
     Indication: Depression
     Dosage: 40 MG ONCE A DAY
  4. LORAZEPAM [Concomitant]
     Active Substance: LORAZEPAM
     Dosage: 2MG 3 TIMES A DAY
     Dates: start: 2008
  5. MIRTAZAPINE [Concomitant]
     Active Substance: MIRTAZAPINE
     Dosage: 45 MG, 1X/DAY
     Dates: start: 2011
  6. PROPRANOLOL HYDROCHLORIDE [Concomitant]
     Active Substance: PROPRANOLOL HYDROCHLORIDE
     Dosage: 40MG 3 TIMES A DAY
     Dates: start: 202210
  7. PRIMIDONE [Concomitant]
     Active Substance: PRIMIDONE
     Dosage: 500MG ONCE A DAY
     Dates: start: 202207

REACTIONS (1)
  - Drug interaction [Unknown]
